FAERS Safety Report 13612622 (Version 3)
Quarter: 2017Q3

REPORT INFORMATION
  Report Type: Spontaneous
  Country: US (occurrence: US)
  Receive Date: 20170605
  Receipt Date: 20170717
  Transmission Date: 20171127
  Serious: No
  Sender: FDA-Public Use
  Company Number: US-TEVA-774824USA

PATIENT
  Sex: Male

DRUGS (6)
  1. NUVIGIL [Suspect]
     Active Substance: ARMODAFINIL
  2. NUVIGIL [Suspect]
     Active Substance: ARMODAFINIL
  3. PROVIGIL [Suspect]
     Active Substance: MODAFINIL
     Indication: BIPOLAR DISORDER
  4. PROVIGIL [Suspect]
     Active Substance: MODAFINIL
     Indication: ATTENTION DEFICIT/HYPERACTIVITY DISORDER
  5. PROVIGIL [Suspect]
     Active Substance: MODAFINIL
     Indication: HYPERSOMNIA
     Route: 065
  6. NUVIGIL [Suspect]
     Active Substance: ARMODAFINIL
     Route: 065

REACTIONS (3)
  - Drug effect decreased [Unknown]
  - Hypersomnia [Unknown]
  - Blood glucose decreased [Unknown]
